FAERS Safety Report 9286512 (Version 1)
Quarter: 2013Q2

REPORT INFORMATION
  Report Type: Spontaneous
  Country: US (occurrence: None)
  Receive Date: 20130510
  Receipt Date: 20130510
  Transmission Date: 20140414
  Serious: Yes (Hospitalization)
  Sender: FDA-Public Use
  Company Number: None

PATIENT
  Age: 80 Year
  Sex: Male
  Weight: 88.7 kg

DRUGS (16)
  1. COUMADIN [Suspect]
     Indication: ATRIAL FIBRILLATION
     Dosage: 5X WEEK/EOD
     Route: 048
  2. PLETAL [Suspect]
     Indication: INTERMITTENT CLAUDICATION
     Route: 048
  3. ASPIRIN [Suspect]
     Route: 048
  4. ENAPRIL [Concomitant]
  5. BYSTOLIC [Concomitant]
  6. LASIX [Concomitant]
  7. ZOCOR [Concomitant]
  8. PRILOSEC [Concomitant]
  9. CA+D, [Concomitant]
  10. IRON [Concomitant]
  11. VIT  B 12 [Concomitant]
  12. MVI PEDIATRIC [Concomitant]
  13. AMBIEN [Concomitant]
  14. XALATAN [Concomitant]
  15. AZOPT [Concomitant]
  16. ADAVIR DISKUS [Concomitant]

REACTIONS (3)
  - Haemorrhagic anaemia [None]
  - Gastrointestinal haemorrhage [None]
  - Thrombocytopenia [None]
